FAERS Safety Report 8254756-0 (Version None)
Quarter: 2012Q2

REPORT INFORMATION
  Report Type: 
  Country: None (occurrence: None)
  Receive Date: 20120403
  Receipt Date: 20120324
  Transmission Date: 20120825
  Serious: Yes (Other)
  Sender: FDA-Public Use
  Company Number: PHHY2012MX027359

PATIENT
  Sex: Female

DRUGS (6)
  1. NORFERON [Concomitant]
     Indication: TACHYCARDIA
     Dosage: 2 TABLETS PER DAY
     Dates: start: 20040101
  2. MULTI-VITAMIN [Concomitant]
     Dosage: UNK UKN, ONCE/SINGLE
  3. LOSARTAN POTASSIUM [Concomitant]
     Indication: BLOOD PRESSURE DECREASED
     Dosage: 2 TABLETS PER DAY
     Dates: start: 20110101
  4. CITRACAL [Concomitant]
     Indication: OSTEOPOROSIS
     Dosage: 2 TABLETS PER DAY
  5. NORFERON [Concomitant]
     Indication: ARRHYTHMIA
  6. ZOLEDRONOC ACID [Suspect]
     Indication: OSTEOPOROSIS
     Dosage: 5 MG/ 100 ML, ONCE A YEAR
     Route: 042
     Dates: start: 20090313

REACTIONS (8)
  - DEPRESSION [None]
  - CHOLELITHIASIS [None]
  - COLITIS [None]
  - FALL [None]
  - BALANCE DISORDER [None]
  - GASTRITIS [None]
  - NAUSEA [None]
  - GAIT DISTURBANCE [None]
